FAERS Safety Report 4966048-3 (Version None)
Quarter: 2006Q2

REPORT INFORMATION
  Report Type: 
  Country: None (occurrence: None)
  Receive Date: 20060407
  Receipt Date: 20060327
  Transmission Date: 20061013
  Serious: Yes (Hospitalization)
  Sender: FDA-Public Use
  Company Number: CH-AMGEN-UK174075

PATIENT
  Age: 70 Year
  Sex: Male

DRUGS (8)
  1. ARANESP [Suspect]
     Indication: ANAEMIA OF MALIGNANT DISEASE
     Route: 051
     Dates: start: 20051025, end: 20051025
  2. ZYLORIC [Concomitant]
     Route: 048
  3. ASPIRIN [Concomitant]
     Route: 048
  4. PANTOZOL [Concomitant]
     Route: 048
  5. BELOC [Concomitant]
     Route: 048
  6. ALDACTONE [Concomitant]
     Route: 048
  7. TORSEMIDE [Concomitant]
     Route: 048
  8. ZOCOR [Concomitant]
     Route: 048

REACTIONS (6)
  - COOMBS TEST POSITIVE [None]
  - HAEMODYNAMIC INSTABILITY [None]
  - LEUKOCYTOSIS [None]
  - RED BLOOD CELL SEDIMENTATION RATE INCREASED [None]
  - RENAL FAILURE [None]
  - WARM TYPE HAEMOLYTIC ANAEMIA [None]
